FAERS Safety Report 10313178 (Version 2)
Quarter: 2014Q3

REPORT INFORMATION
  Report Type: Spontaneous
  Country: CN (occurrence: CN)
  Receive Date: 20140718
  Receipt Date: 20140718
  Transmission Date: 20150326
  Serious: Yes (Other)
  Sender: FDA-Public Use
  Company Number: PHHY2013CN154334

PATIENT
  Age: 82 Year
  Sex: Female

DRUGS (3)
  1. LEVAMLODIPINE BESILATE [Concomitant]
     Indication: HYPERTENSION
  2. DIOVAN [Suspect]
     Active Substance: VALSARTAN
     Indication: HYPERTENSION
     Dosage: 1 DF, QD (80 MG)
     Route: 048
     Dates: start: 20131230, end: 20131230
  3. DIOVAN [Suspect]
     Active Substance: VALSARTAN
     Dosage: 0.25 DF (80MG) IN THE NIGHT

REACTIONS (4)
  - Blood pressure systolic increased [Recovering/Resolving]
  - Medication error [Recovering/Resolving]
  - Wrong technique in drug usage process [Unknown]
  - Therapeutic response decreased [Recovering/Resolving]

NARRATIVE: CASE EVENT DATE: 20131231
